FAERS Safety Report 18465138 (Version 1)
Quarter: 2020Q4

REPORT INFORMATION
  Report Type: Spontaneous
  Country: US (occurrence: US)
  Receive Date: 20201104
  Receipt Date: 20201104
  Transmission Date: 20210114
  Serious: Yes (Other)
  Sender: FDA-Public Use
  Company Number: US-PAIPHARMA-2020-US-022090

PATIENT
  Sex: Male

DRUGS (1)
  1. RANITIDINE (NON-SPECIFIC) [Suspect]
     Active Substance: RANITIDINE
     Indication: PRODUCT USED FOR UNKNOWN INDICATION
     Route: 065
     Dates: start: 1996, end: 2019

REACTIONS (1)
  - Renal cancer [Unknown]

NARRATIVE: CASE EVENT DATE: 201806
